FAERS Safety Report 6851839-4 (Version None)
Quarter: 2010Q3

REPORT INFORMATION
  Report Type: 
  Country: None (occurrence: None)
  Receive Date: 20100717
  Receipt Date: 20071030
  Transmission Date: 20110219
  Serious: No
  Sender: FDA-Public Use
  Company Number: US-PFIZER INC-2007092829

PATIENT
  Sex: Male
  Weight: 90.7 kg

DRUGS (3)
  1. CHANTIX [Suspect]
     Indication: SMOKING CESSATION THERAPY
     Route: 048
     Dates: start: 20071001, end: 20071027
  2. METFORMIN HCL [Concomitant]
  3. ZANTAC [Concomitant]
     Indication: DYSPEPSIA

REACTIONS (3)
  - ANGER [None]
  - IRRITABILITY [None]
  - NERVOUSNESS [None]
